FAERS Safety Report 24553441 (Version 1)
Quarter: 2024Q4

REPORT INFORMATION
  Report Type: Spontaneous
  Country: US (occurrence: US)
  Receive Date: 20241028
  Receipt Date: 20241028
  Transmission Date: 20250115
  Serious: No
  Sender: ROCHE
  Company Number: US-ROCHE-3520120

PATIENT
  Sex: Female
  Weight: 66.68 kg

DRUGS (1)
  1. NUTROPIN AQ [Suspect]
     Active Substance: SOMATROPIN
     Indication: Adrenal insufficiency
     Dosage: RECEIVING PEN ONCE A MONTH ;ONGOING: UNKNOWN
     Route: 065
     Dates: end: 20231229

REACTIONS (2)
  - Off label use [Unknown]
  - No adverse event [Unknown]
